FAERS Safety Report 17876541 (Version 2)
Quarter: 2020Q3

REPORT INFORMATION
  Report Type: Spontaneous
  Country: JP (occurrence: JP)
  Receive Date: 20200609
  Receipt Date: 20200730
  Transmission Date: 20201103
  Serious: Yes (Death, Hospitalization)
  Sender: FDA-Public Use
  Company Number: JP-ELI_LILLY_AND_COMPANY-JP202006001979

PATIENT
  Age: 58 Year
  Sex: Female
  Weight: 48 kg

DRUGS (6)
  1. VERZENIO [Suspect]
     Active Substance: ABEMACICLIB
     Dosage: 100 MG, BID
     Route: 048
     Dates: start: 20200106, end: 20200119
  2. LAC?B [Suspect]
     Active Substance: BIFIDOBACTERIUM SPP.
     Indication: DIARRHOEA
     Dosage: 6 G, DAILY
     Route: 048
     Dates: start: 20191223, end: 20200217
  3. VERZENIO [Suspect]
     Active Substance: ABEMACICLIB
     Indication: INVASIVE LOBULAR BREAST CARCINOMA
     Dosage: 150 MG, BID
     Route: 048
     Dates: start: 20191216, end: 20200105
  4. VERZENIO [Suspect]
     Active Substance: ABEMACICLIB
     Dosage: 50 MG, BID
     Route: 048
     Dates: start: 20200120, end: 20200217
  5. FASLODEX [Suspect]
     Active Substance: FULVESTRANT
     Indication: INVASIVE LOBULAR BREAST CARCINOMA
     Dosage: 500 MG, CYCLICAL
     Route: 030
     Dates: start: 20191223, end: 20200120
  6. MIYA?BM [Concomitant]
     Active Substance: CLOSTRIDIUM BUTYRICUM SPORES STRAIN M-55
     Indication: PROPHYLAXIS AGAINST DIARRHOEA
     Dosage: 6 DOSAGE FORM, DAILY
     Route: 048
     Dates: start: 20191216, end: 20200217

REACTIONS (3)
  - Diarrhoea [Recovering/Resolving]
  - Liver disorder [Recovered/Resolved]
  - Malignant neoplasm progression [Fatal]

NARRATIVE: CASE EVENT DATE: 20191223
